FAERS Safety Report 8035841-5 (Version None)
Quarter: 2012Q1

REPORT INFORMATION
  Report Type: 
  Country: None (occurrence: None)
  Receive Date: 20120111
  Receipt Date: 20120111
  Transmission Date: 20120608
  Serious: Yes (Hospitalization, Other)
  Sender: FDA-Public Use
  Company Number: None

PATIENT
  Age: 38 Year
  Sex: Female
  Weight: 54.431 kg

DRUGS (2)
  1. PAROXETINE [Suspect]
     Indication: ANXIETY
     Dosage: 10MG
     Route: 048
     Dates: start: 20111229, end: 20120108
  2. PAROXETINE [Concomitant]
     Dosage: INCREASE TO 20MG AFTER ONE WEEK
     Route: 048

REACTIONS (15)
  - INSOMNIA [None]
  - CHILLS [None]
  - AGITATION [None]
  - FORMICATION [None]
  - VOMITING [None]
  - BLOOD PRESSURE INCREASED [None]
  - HYPERHIDROSIS [None]
  - FEELING ABNORMAL [None]
  - NAUSEA [None]
  - PARAESTHESIA [None]
  - DRY MOUTH [None]
  - HEADACHE [None]
  - FEELING JITTERY [None]
  - RESTLESSNESS [None]
  - HEART RATE INCREASED [None]
